FAERS Safety Report 5943879-4 (Version None)
Quarter: 2008Q4

REPORT INFORMATION
  Report Type: 
  Country: None (occurrence: None)
  Receive Date: 20081106
  Receipt Date: 20081029
  Transmission Date: 20090506
  Serious: Yes (Death)
  Sender: FDA-Public Use
  Company Number: JP-WYE-H06727108

PATIENT
  Age: 70 Year
  Sex: Female

DRUGS (1)
  1. ANCARON [Suspect]
     Indication: VENTRICULAR TACHYCARDIA
     Dosage: UNSPECIFIED
     Route: 042

REACTIONS (1)
  - CARDIAC ARREST [None]
